FAERS Safety Report 22017916 (Version 3)
Quarter: 2023Q1

REPORT INFORMATION
  Report Type: Spontaneous
  Country: US (occurrence: US)
  Receive Date: 20230221
  Receipt Date: 20230224
  Transmission Date: 20230418
  Serious: Yes (Hospitalization)
  Sender: FDA-Public Use
  Company Number: US-BRISTOL-MYERS SQUIBB COMPANY-2023-024782

PATIENT
  Age: 90 Year
  Sex: Female

DRUGS (2)
  1. LENALIDOMIDE [Suspect]
     Active Substance: LENALIDOMIDE
     Indication: Anaemia
     Dosage: FREQUENCY: EVERY DAY FOR 21 DAYS, THEN 7 DAYS OFF
     Route: 048
  2. LENALIDOMIDE [Suspect]
     Active Substance: LENALIDOMIDE
     Dosage: FREQUENCY: EVERY DAY FOR 21 DAYS, THEN 7 DAYS OFF, TAKE 1 CAPSULE BY MOUTH DAILY FOR 21 DAYS FOLLOWE
     Route: 048
     Dates: start: 20221228

REACTIONS (4)
  - Off label use [Unknown]
  - Fatigue [Unknown]
  - Vision blurred [Recovered/Resolved]
  - Headache [Recovered/Resolved]
